FAERS Safety Report 19258610 (Version 1)
Quarter: 2021Q2

REPORT INFORMATION
  Report Type: Spontaneous
  Country: CA (occurrence: CA)
  Receive Date: 20210514
  Receipt Date: 20210514
  Transmission Date: 20210717
  Serious: Yes (Hospitalization, Other)
  Sender: FDA-Public Use
  Company Number: CA-SUN PHARMACEUTICAL INDUSTRIES LTD-2021R1-296556

PATIENT
  Age: 34 Year
  Sex: Male
  Weight: 102 kg

DRUGS (3)
  1. PRISTIQ EXTENDED?RELEASE [Suspect]
     Active Substance: DESVENLAFAXINE SUCCINATE
     Indication: MAJOR DEPRESSION
     Dosage: 50 MILLIGRAM, 1 EVERY 1 DAYS
     Route: 048
  2. TARO?VENLAFAXINE XR [Suspect]
     Active Substance: VENLAFAXINE HYDROCHLORIDE
     Indication: PRODUCT USED FOR UNKNOWN INDICATION
     Dosage: 75 MILLIGRAM, 1 EVERY 1 DAYS
     Route: 048
  3. QUETIAPINE. [Concomitant]
     Active Substance: QUETIAPINE
     Indication: PRODUCT USED FOR UNKNOWN INDICATION
     Dosage: UNK
     Route: 065

REACTIONS (9)
  - Tremor [Unknown]
  - Hyperreflexia [Unknown]
  - Syncope [Unknown]
  - Balance disorder [Unknown]
  - Blepharospasm [Unknown]
  - Hyperhidrosis [Unknown]
  - Memory impairment [Unknown]
  - Myalgia [Unknown]
  - Blood creatine phosphokinase increased [Unknown]
